FAERS Safety Report 12726010 (Version 1)
Quarter: 2016Q3

REPORT INFORMATION
  Report Type: Report from Study
  Country: IT (occurrence: IT)
  Receive Date: 20160908
  Receipt Date: 20160908
  Transmission Date: 20161109
  Serious: Yes (Other)
  Sender: FDA-Public Use
  Company Number: IT-MYLANLABS-2016M1037187

PATIENT

DRUGS (1)
  1. LEVETIRACETAM MYLAN GENERICS 500MG COMPRESSE RIVESTITE CON FILM [Suspect]
     Active Substance: LEVETIRACETAM
     Indication: EPILEPSY

REACTIONS (4)
  - Generalised tonic-clonic seizure [Recovering/Resolving]
  - Irritability [Recovering/Resolving]
  - Aggression [Recovering/Resolving]
  - Conduct disorder [Recovering/Resolving]
